FAERS Safety Report 17571604 (Version 1)
Quarter: 2020Q1

REPORT INFORMATION
  Report Type: Spontaneous
  Country: CA (occurrence: CA)
  Receive Date: 20200323
  Receipt Date: 20200323
  Transmission Date: 20200409
  Serious: Yes (Other)
  Sender: FDA-Public Use
  Company Number: CA-TEVA-2020-CA-1207731

PATIENT
  Age: 46 Year
  Sex: Female
  Weight: 92 kg

DRUGS (1)
  1. TOLTERODINE [Suspect]
     Active Substance: TOLTERODINE
     Indication: HYPERTONIC BLADDER
     Dosage: 4 MILLIGRAM DAILY;
     Route: 065

REACTIONS (8)
  - Condition aggravated [Recovered/Resolved]
  - Micturition urgency [Recovered/Resolved]
  - Nocturia [Recovered/Resolved]
  - Drug ineffective [Recovered/Resolved]
  - Hypertonic bladder [Recovered/Resolved]
  - Product substitution issue [Recovered/Resolved]
  - Urinary retention [Recovered/Resolved]
  - Off label use [Recovered/Resolved]
